FAERS Safety Report 4817920-6 (Version None)
Quarter: 2005Q3

REPORT INFORMATION
  Report Type: 
  Country: None (occurrence: None)
  Receive Date: 20050929
  Receipt Date: 20050617
  Transmission Date: 20060218
  Serious: No
  Sender: FDA-Public Use
  Company Number: 05P-163-0303432-00

PATIENT
  Age: 57 Year
  Sex: Female
  Weight: 57.1532 kg

DRUGS (6)
  1. HUMIRA [Suspect]
     Indication: FIBROMYALGIA
     Dosage: 40 MG, 1 IN 2 WK, SUBCUTANEOUS
     Route: 058
     Dates: start: 20050602
  2. HUMIRA [Suspect]
     Indication: RHEUMATOID ARTHRITIS
     Dosage: 40 MG, 1 IN 2 WK, SUBCUTANEOUS
     Route: 058
     Dates: start: 20050602
  3. HUMIRA [Suspect]
     Indication: SYSTEMIC LUPUS ERYTHEMATOSUS
     Dosage: 40 MG, 1 IN 2 WK, SUBCUTANEOUS
     Route: 058
     Dates: start: 20050602
  4. PREDNISONE [Concomitant]
  5. LEVOTHYROXINE SODIUM [Concomitant]
  6. ESOMEPRAZOLE [Concomitant]

REACTIONS (2)
  - HEADACHE [None]
  - INJECTION SITE IRRITATION [None]
